FAERS Safety Report 20011565 (Version 1)
Quarter: 2021Q4

REPORT INFORMATION
  Report Type: Spontaneous
  Country: US (occurrence: US)
  Receive Date: 20211029
  Receipt Date: 20211029
  Transmission Date: 20220303
  Serious: No
  Sender: FDA-Public Use
  Company Number: US-HIKMA PHARMACEUTICALS USA INC.-US-H14001-21-04206

PATIENT
  Sex: Female

DRUGS (1)
  1. AZELASTINE. [Suspect]
     Active Substance: AZELASTINE HYDROCHLORIDE
     Indication: Hypersensitivity
     Dosage: TWO SPRAYS IN EACH NOSTRIL
     Route: 045

REACTIONS (2)
  - Exposure via skin contact [Unknown]
  - Product dose omission issue [Unknown]
